FAERS Safety Report 5493818-8 (Version None)
Quarter: 2007Q4

REPORT INFORMATION
  Report Type: 
  Country: None (occurrence: None)
  Receive Date: 20071015
  Receipt Date: 20070906
  Transmission Date: 20080405
  Serious: No
  Sender: FDA-Public Use
  Company Number: 2007SP003103

PATIENT
  Age: 42 Year
  Sex: Female
  Weight: 53.978 kg

DRUGS (9)
  1. LUNESTA [Suspect]
     Indication: INSOMNIA
     Dosage: 3 MG; ORAL; 4.5 MG; ORAL; 4.5 MG; 1X; ORAL
     Route: 048
     Dates: start: 20070905, end: 20070905
  2. LUNESTA [Suspect]
     Indication: INSOMNIA
     Dosage: 3 MG; ORAL; 4.5 MG; ORAL; 4.5 MG; 1X; ORAL
     Route: 048
     Dates: start: 20060101
  3. AMBIEN [Suspect]
     Indication: INSOMNIA
     Dosage: ORAL
     Route: 048
  4. EFFEXOR [Concomitant]
  5. LORAZEPAM [Concomitant]
  6. LAMOTRIGINE [Concomitant]
  7. HYDROCODONE BITARTRATE [Concomitant]
  8. LUPRON [Concomitant]
  9. HORMONES AND RELATED AGENTS [Concomitant]

REACTIONS (1)
  - INSOMNIA [None]
